FAERS Safety Report 10726216 (Version 2)
Quarter: 2015Q1

REPORT INFORMATION
  Report Type: Report from Study
  Country: US (occurrence: US)
  Receive Date: 20150121
  Receipt Date: 20150228
  Transmission Date: 20150721
  Serious: Yes (Other)
  Sender: FDA-Public Use
  Company Number: PHEH2015US001149

PATIENT
  Sex: Female
  Weight: 56.69 kg

DRUGS (1)
  1. GILENYA [Suspect]
     Active Substance: FINGOLIMOD HYDROCHLORIDE
     Indication: MULTIPLE SCLEROSIS
     Dosage: 0.5 MG, QD
     Route: 048
     Dates: start: 20141017

REACTIONS (4)
  - Fatigue [Recovered/Resolved]
  - Paraesthesia [Recovered/Resolved]
  - Blindness unilateral [Recovered/Resolved]
  - Optic neuritis [Unknown]
